FAERS Safety Report 8736846 (Version 4)
Quarter: 2012Q4

REPORT INFORMATION
  Report Type: 
  Country: FR (occurrence: FR)
  Receive Date: 20120822
  Receipt Date: 20120913
  Transmission Date: 20130627
  Serious: Yes (Death)
  Sender: FDA-Public Use
  Company Number: FR-ALLERGAN-1211554US

PATIENT
  Age: 40 Year
  Sex: Male

DRUGS (10)
  1. BOTOX [Suspect]
     Indication: SPASTICITY
     Dosage: 100 UNITS, single
     Dates: start: 20120730, end: 20120730
  2. BOTOX [Suspect]
     Dosage: 50 UNITS, single
     Route: 030
     Dates: start: 20120730, end: 20120730
  3. BOTOX [Suspect]
     Dosage: 75 UNITS, single
     Route: 030
     Dates: start: 20120730, end: 20120730
  4. BOTOX [Suspect]
     Dosage: 75 UNITS, single
     Route: 030
     Dates: start: 20120730, end: 20120730
  5. BOTOX [Suspect]
     Dosage: 50 UNITS, single
     Dates: start: 20120730, end: 20120730
  6. COVERSYL [Concomitant]
     Indication: CARDIAC DISORDER
     Dosage: 5 mg, UNK
  7. SEROPLEX [Concomitant]
     Indication: DEPRESSIVE DISORDER
     Dosage: 10 mg, UNK
  8. TEMERIT [Concomitant]
     Indication: HYPERTENSION ARTERIAL
     Dosage: 5 mg, UNK
  9. LIORESAL [Concomitant]
     Indication: SPASTICITY
     Dosage: 9 DF, QD
  10. RIVOTRIL [Concomitant]
     Indication: NEUROPATHIC PAIN
     Dosage: 9 Gtt, UNK
     Route: 048

REACTIONS (1)
  - Death [Fatal]
